FAERS Safety Report 7967704-5 (Version None)
Quarter: 2011Q4

REPORT INFORMATION
  Report Type: 
  Country: None (occurrence: None)
  Receive Date: 20111209
  Receipt Date: 20111129
  Transmission Date: 20120403
  Serious: Yes (Hospitalization, Other)
  Sender: FDA-Public Use
  Company Number: DE-B.I. PHARMACEUTICALS,INC./RIDGEFIELD-2011-DE-06612DE

PATIENT
  Age: 80 Year
  Sex: Male

DRUGS (3)
  1. PRADAXA [Suspect]
     Indication: ATRIAL FIBRILLATION
  2. ENOXAPARIN SODIUM [Concomitant]
     Dosage: 20 OR 40 MG
  3. PRADAXA [Suspect]
     Dosage: 220 MG

REACTIONS (2)
  - SURGERY [None]
  - CATHETER SITE HAEMORRHAGE [None]
